FAERS Safety Report 21294036 (Version 1)
Quarter: 2022Q3

REPORT INFORMATION
  Report Type: Spontaneous
  Country: US (occurrence: US)
  Receive Date: 20220905
  Receipt Date: 20220905
  Transmission Date: 20221027
  Serious: Yes (Other)
  Sender: FDA-Public Use
  Company Number: US-TORRENT-00011993

PATIENT
  Age: 74 Year
  Sex: Male

DRUGS (1)
  1. MINOCYCLINE [Suspect]
     Active Substance: MINOCYCLINE HYDROCHLORIDE
     Indication: Rheumatoid arthritis
     Dosage: A YEAR AND A HALF AGO
     Route: 065

REACTIONS (2)
  - Glomerulonephritis rapidly progressive [Recovered/Resolved]
  - Acute kidney injury [Recovered/Resolved]
